FAERS Safety Report 8274830-2 (Version None)
Quarter: 2012Q2

REPORT INFORMATION
  Report Type: 
  Country: None (occurrence: None)
  Receive Date: 20120411
  Receipt Date: 20120403
  Transmission Date: 20120825
  Serious: Yes (Hospitalization)
  Sender: FDA-Public Use
  Company Number: ES-JNJFOC-20120402837

PATIENT
  Age: 54 Year
  Sex: Female
  Weight: 69 kg

DRUGS (1)
  1. MEBENDAZOLE [Suspect]
     Indication: INFECTION PARASITIC
     Route: 065
     Dates: start: 20120224, end: 20120228

REACTIONS (1)
  - TOXIC SKIN ERUPTION [None]
